FAERS Safety Report 15114714 (Version 1)
Quarter: 2018Q3

REPORT INFORMATION
  Report Type: Spontaneous
  Country: US (occurrence: US)
  Receive Date: 20180706
  Receipt Date: 20180706
  Transmission Date: 20181010
  Serious: Yes (Hospitalization, Other)
  Sender: FDA-Public Use
  Company Number: US-GLAXOSMITHKLINE-US2018GSK118061

PATIENT
  Age: 63 Year
  Sex: Female

DRUGS (1)
  1. BREO ELLIPTA [Suspect]
     Active Substance: FLUTICASONE FUROATE\VILANTEROL TRIFENATATE
     Indication: ASTHMA
     Dosage: UNK
     Route: 048
     Dates: start: 2017

REACTIONS (6)
  - Sinusitis [Unknown]
  - Intestinal obstruction [Unknown]
  - Haemoptysis [Unknown]
  - Gastric disorder [Unknown]
  - Gastrooesophageal reflux disease [Unknown]
  - Dry mouth [Unknown]

NARRATIVE: CASE EVENT DATE: 20180422
